FAERS Safety Report 8119303-2 (Version None)
Quarter: 2012Q1

REPORT INFORMATION
  Report Type: 
  Country: None (occurrence: None)
  Receive Date: 20120207
  Receipt Date: 20120123
  Transmission Date: 20120608
  Serious: Yes (Hospitalization, Other)
  Sender: FDA-Public Use
  Company Number: CA-ARROW GEN-2012-01751

PATIENT
  Age: 24 Hour
  Sex: Male

DRUGS (1)
  1. CITALOPRAM HYDROBROMIDE [Suspect]
     Indication: FOETAL EXPOSURE DURING PREGNANCY
     Dosage: UNK MG, DAILY
     Route: 064

REACTIONS (7)
  - AGITATION NEONATAL [None]
  - HYPERTONIA NEONATAL [None]
  - TREMOR NEONATAL [None]
  - HYPOGLYCAEMIA NEONATAL [None]
  - NEONATAL RESPIRATORY DISTRESS SYNDROME [None]
  - GRUNTING [None]
  - NEONATAL DISORDER [None]
